FAERS Safety Report 4874971-3 (Version None)
Quarter: 2006Q1

REPORT INFORMATION
  Report Type: 
  Country: None (occurrence: None)
  Receive Date: 20060104
  Receipt Date: 20051221
  Transmission Date: 20060701
  Serious: Yes (Hospitalization)
  Sender: FDA-Public Use
  Company Number: 2005167388

PATIENT
  Age: 65 Year
  Sex: Male
  Weight: 65.8 kg

DRUGS (4)
  1. AZULFIDINE EN-TABS [Suspect]
     Indication: RHEUMATOID ARTHRITIS
     Dosage: 500 MG (500 MG, 1 IN 1 D), ORAL
     Route: 048
     Dates: start: 20051118, end: 20051202
  2. PREDNISOLONE [Concomitant]
  3. FAMOTIDINE [Concomitant]
  4. MUCOSTA (REBAMIPIDE) [Concomitant]

REACTIONS (3)
  - HAEMATURIA [None]
  - PETECHIAE [None]
  - PLATELET COUNT DECREASED [None]
